FAERS Safety Report 5619653-5 (Version None)
Quarter: 2008Q1

REPORT INFORMATION
  Report Type: 
  Country: None (occurrence: None)
  Receive Date: 20080206
  Receipt Date: 20080124
  Transmission Date: 20080703
  Serious: Yes (Death, Congenital Anomaly)
  Sender: FDA-Public Use
  Company Number: 230864J08USA

PATIENT
  Sex: Female

DRUGS (4)
  1. REBIF [Suspect]
     Indication: MULTIPLE SCLEROSIS
     Dosage: TRANSPLACENTAL
     Route: 064
     Dates: end: 20030201
  2. NEURONTIN [Suspect]
     Indication: NEURALGIA
     Dosage: TRANSPLACENTAL
     Route: 064
     Dates: end: 20030201
  3. LEXAPRO [Suspect]
     Indication: DEPRESSION
     Dosage: TRANSPLACENTAL
     Route: 064
     Dates: end: 20030201
  4. MECLIZINE [Suspect]
     Indication: BALANCE DISORDER
     Dosage: TRANSPLACENTAL
     Route: 064
     Dates: end: 20030201

REACTIONS (5)
  - CLEFT PALATE [None]
  - DRUG EXPOSURE DURING PREGNANCY [None]
  - INTRA-UTERINE DEATH [None]
  - LIMB MALFORMATION [None]
  - SKULL MALFORMATION [None]
